FAERS Safety Report 4995713-7 (Version None)
Quarter: 2006Q2

REPORT INFORMATION
  Report Type: 
  Country: None (occurrence: None)
  Receive Date: 20060504
  Receipt Date: 20060501
  Transmission Date: 20061013
  Serious: Yes (Disabling)
  Sender: FDA-Public Use
  Company Number: 007348

PATIENT
  Sex: Female

DRUGS (1)
  1. CLARAVIS [Suspect]
     Indication: ACNE
     Dosage: ORAL
     Route: 048

REACTIONS (5)
  - ALOPECIA [None]
  - BLINDNESS [None]
  - DEAFNESS [None]
  - HEADACHE [None]
  - NERVOUS SYSTEM DISORDER [None]
